FAERS Safety Report 10878110 (Version 1)
Quarter: 2015Q1

REPORT INFORMATION
  Report Type: Report from Study
  Country: US (occurrence: US)
  Receive Date: 20150302
  Receipt Date: 20150302
  Transmission Date: 20150721
  Serious: No
  Sender: FDA-Public Use
  Company Number: US-ABBVIE-14P-163-1304922-00

PATIENT
  Age: 62 Year
  Sex: Male
  Weight: 74.91 kg

DRUGS (9)
  1. UNKNOWN DIABETIC MEDICATION [Concomitant]
     Indication: DIABETES MELLITUS
  2. UNKNOWN GASTRIC REFLUX MEDICATION [Concomitant]
     Indication: GASTROOESOPHAGEAL REFLUX DISEASE
  3. ANDROGEL [Suspect]
     Active Substance: TESTOSTERONE
     Dosage: 5 PUMPS
     Route: 061
     Dates: start: 201410, end: 20141101
  4. ANDROGEL [Suspect]
     Active Substance: TESTOSTERONE
     Indication: PRODUCT USED FOR UNKNOWN INDICATION
     Dosage: 3 PUMPS
     Route: 061
     Dates: start: 20141102
  5. UNKNOWN THYROID MEDICATION [Concomitant]
     Indication: THYROID DISORDER
  6. UNKNOWN BIPOLAR MEDICATION [Concomitant]
     Indication: BIPOLAR DISORDER
  7. ANDROGEL [Suspect]
     Active Substance: TESTOSTERONE
     Indication: PRODUCT USED FOR UNKNOWN INDICATION
     Dosage: 3 PUMPS
     Route: 061
     Dates: start: 2010, end: 201410
  8. ANDROGEL [Suspect]
     Active Substance: TESTOSTERONE
     Dosage: 4 PUMPS
     Route: 061
     Dates: start: 201410, end: 201410
  9. UNKNOWNN HEART MEDICATION [Concomitant]
     Indication: CARDIOVASCULAR DISORDER

REACTIONS (4)
  - Application site pain [Recovered/Resolved]
  - Fatigue [Recovered/Resolved]
  - Application site pain [Not Recovered/Not Resolved]
  - Blood testosterone decreased [Unknown]

NARRATIVE: CASE EVENT DATE: 2010
